FAERS Safety Report 19616011 (Version 3)
Quarter: 2021Q3

REPORT INFORMATION
  Report Type: Spontaneous
  Country: CA (occurrence: CA)
  Receive Date: 20210727
  Receipt Date: 20210906
  Transmission Date: 20211014
  Serious: Yes (Other)
  Sender: FDA-Public Use
  Company Number: CA-ORGANON-O2107CAN001845

PATIENT
  Sex: Female

DRUGS (1)
  1. NEXPLANON [Suspect]
     Active Substance: ETONOGESTREL
     Dosage: 1 IMPLANT
     Route: 059
     Dates: start: 20210429, end: 20210710

REACTIONS (7)
  - Cellulitis [Unknown]
  - Implant site exfoliation [Unknown]
  - Implant site scar [Unknown]
  - Foreign body reaction [Unknown]
  - Wrong technique in device usage process [Unknown]
  - Wound [Unknown]
  - Device expulsion [Recovered/Resolved]

NARRATIVE: CASE EVENT DATE: 2021
